FAERS Safety Report 10611187 (Version 1)
Quarter: 2014Q4

REPORT INFORMATION
  Report Type: Spontaneous
  Country: US (occurrence: US)
  Receive Date: 20141126
  Receipt Date: 20141126
  Transmission Date: 20150529
  Serious: Yes (Other)
  Sender: FDA-Public Use
  Company Number: US-BAYER-2014-170360

PATIENT
  Age: 61 Year
  Sex: Female
  Weight: 87.75 kg

DRUGS (2)
  1. ALEVE [Suspect]
     Active Substance: NAPROXEN SODIUM
     Indication: ANALGESIC THERAPY
     Dosage: 2 DF, PRN
     Route: 048
     Dates: start: 2014, end: 20141111
  2. ALEVE [Suspect]
     Active Substance: NAPROXEN SODIUM
     Indication: HEADACHE
     Dosage: 2 DF, PRN
     Route: 048
     Dates: start: 2014, end: 20141111

REACTIONS (12)
  - Laceration [Not Recovered/Not Resolved]
  - Rash [Not Recovered/Not Resolved]
  - Urticaria [Recovered/Resolved]
  - Periorbital contusion [Not Recovered/Not Resolved]
  - Syncope [Recovered/Resolved]
  - Hypersensitivity [Not Recovered/Not Resolved]
  - Head injury [Recovered/Resolved]
  - Subcutaneous haematoma [Not Recovered/Not Resolved]
  - Urticaria [Recovered/Resolved]
  - Alopecia [Not Recovered/Not Resolved]
  - Fall [None]
  - Hand fracture [Not Recovered/Not Resolved]

NARRATIVE: CASE EVENT DATE: 2014
